FAERS Safety Report 7928205-3 (Version None)
Quarter: 2011Q4

REPORT INFORMATION
  Report Type: 
  Country: None (occurrence: None)
  Receive Date: 20111118
  Receipt Date: 20111114
  Transmission Date: 20120403
  Serious: Yes (Other)
  Sender: FDA-Public Use
  Company Number: US-JNJFOC-20110908520

PATIENT
  Age: 67 Year
  Sex: Male
  Weight: 133.81 kg

DRUGS (5)
  1. FISH OIL [Concomitant]
     Indication: ROUTINE HEALTH MAINTENANCE
     Route: 065
  2. LISTERINE FRESHBURST [Suspect]
     Indication: DENTAL DISORDER PROPHYLAXIS
     Dosage: ONE TABLESPOON
     Route: 048
     Dates: start: 20110801
  3. UNSPECIFIED SEIZURE MEDICATIONS [Concomitant]
     Indication: CONVULSION
     Route: 065
  4. HIGH CHOLESTEROL MEDICATION, NOS [Concomitant]
     Indication: BLOOD CHOLESTEROL INCREASED
     Route: 065
  5. MULTI-VITAMINS [Concomitant]
     Indication: ROUTINE HEALTH MAINTENANCE
     Route: 065

REACTIONS (1)
  - APPLICATION SITE BURN [None]
